FAERS Safety Report 12231237 (Version 5)
Quarter: 2016Q3

REPORT INFORMATION
  Report Type: Spontaneous
  Country: JP (occurrence: JP)
  Receive Date: 20160401
  Receipt Date: 20160811
  Transmission Date: 20161109
  Serious: Yes (Death, Life-Threatening)
  Sender: FDA-Public Use
  Company Number: JP-ACTELION-A-CH2016-133519

PATIENT
  Age: 80 Year
  Sex: Female

DRUGS (13)
  1. TELMISARTAN. [Concomitant]
     Active Substance: TELMISARTAN
  2. WARFARIN POTASSIUM [Concomitant]
     Active Substance: WARFARIN POTASSIUM
  3. SPIRONOLACTONE. [Concomitant]
     Active Substance: SPIRONOLACTONE
  4. NIFEDIPINE. [Concomitant]
     Active Substance: NIFEDIPINE
  5. TADALAFIL [Concomitant]
     Active Substance: TADALAFIL
  6. OXYGEN. [Concomitant]
     Active Substance: OXYGEN
  7. DIGOXIN. [Concomitant]
     Active Substance: DIGOXIN
  8. AZOSEMIDE [Concomitant]
     Active Substance: AZOSEMIDE
  9. ENALAPRIL MALEATE. [Concomitant]
     Active Substance: ENALAPRIL MALEATE
  10. DOBUTAMINE HYDROCHLORIDE. [Concomitant]
     Active Substance: DOBUTAMINE HYDROCHLORIDE
  11. OPSUMIT [Suspect]
     Active Substance: MACITENTAN
     Indication: PULMONARY HYPERTENSION
     Dosage: 10 MG, QD
     Route: 048
     Dates: start: 20160309, end: 20160310
  12. ADCIRCA [Suspect]
     Active Substance: TADALAFIL
     Indication: PULMONARY HYPERTENSION
     Dosage: UNK
     Route: 048
     Dates: start: 20160310, end: 20160311
  13. FEBUXOSTAT. [Concomitant]
     Active Substance: FEBUXOSTAT

REACTIONS (5)
  - Condition aggravated [Fatal]
  - Left ventricular failure [Fatal]
  - Dysphagia [Not Recovered/Not Resolved]
  - Concomitant disease aggravated [Fatal]
  - Cardiac failure congestive [Fatal]

NARRATIVE: CASE EVENT DATE: 20160311
